FAERS Safety Report 9808235 (Version 2)
Quarter: 2014Q1

REPORT INFORMATION
  Report Type: Report from Study
  Country: US (occurrence: US)
  Receive Date: 20140110
  Receipt Date: 20140122
  Transmission Date: 20141002
  Serious: Yes (Other)
  Sender: FDA-Public Use
  Company Number: US-ROCHE-1328215

PATIENT
  Age: 71 Year
  Sex: Female

DRUGS (16)
  1. LUCENTIS [Suspect]
     Indication: DIABETIC RETINAL OEDEMA
     Route: 050
  2. LUCENTIS [Suspect]
     Indication: DIABETIC RETINOPATHY
  3. LUCENTIS [Suspect]
     Indication: DIABETIC EYE DISEASE
  4. AVASTIN [Suspect]
     Indication: DIABETIC RETINAL OEDEMA
     Dosage: X 4 DOSES
     Route: 050
  5. AVASTIN [Suspect]
     Indication: DIABETIC RETINOPATHY
  6. AVASTIN [Suspect]
     Indication: DIABETIC EYE DISEASE
  7. RESTASIS [Suspect]
     Indication: DIABETIC RETINAL OEDEMA
     Dosage: BID OU; 7PM + 10:30PM
     Route: 047
  8. RESTASIS [Suspect]
     Indication: DIABETIC RETINOPATHY
  9. RESTASIS [Suspect]
     Indication: DIABETIC EYE DISEASE
  10. CYTOXAN [Concomitant]
  11. AUGMENTIN [Concomitant]
  12. PREDNISOLONE [Concomitant]
     Dosage: QID OS
     Route: 065
  13. BROMDAY [Concomitant]
     Dosage: OD-OS
     Route: 065
  14. REFRESH TEARS [Concomitant]
     Route: 065
     Dates: start: 20110601
  15. MYCIN [Concomitant]
     Route: 065
  16. ALCAINE [Concomitant]

REACTIONS (36)
  - Punctate keratitis [Unknown]
  - Eye pruritus [Unknown]
  - Vitreous floaters [Unknown]
  - Visual acuity reduced [Unknown]
  - Asthenopia [Unknown]
  - Lacrimation decreased [Unknown]
  - Blood glucose increased [Unknown]
  - Pterygium [Unknown]
  - Eye pain [Unknown]
  - Eye pain [Unknown]
  - Photopsia [Unknown]
  - Retinal haemorrhage [Recovering/Resolving]
  - Vision blurred [Unknown]
  - Autoimmune disorder [Unknown]
  - Eye complication associated with device [Unknown]
  - Dry eye [Unknown]
  - Off label use [Unknown]
  - Retinal aneurysm [Unknown]
  - Vitreous haemorrhage [Unknown]
  - Eye oedema [Unknown]
  - Retinal disorder [Unknown]
  - Macular fibrosis [Unknown]
  - Diabetic retinopathy [Unknown]
  - Vitreous floaters [Unknown]
  - Retinal haemorrhage [Unknown]
  - Macular degeneration [Unknown]
  - Vision blurred [Unknown]
  - Retinal exudates [Unknown]
  - Hypersensitivity [Unknown]
  - Vitreous detachment [Unknown]
  - Macular scar [Unknown]
  - Local swelling [Unknown]
  - Photopsia [Unknown]
  - Dry eye [Unknown]
  - Retinal neovascularisation [Unknown]
  - Drug hypersensitivity [Unknown]
